FAERS Safety Report 8415734-1 (Version None)
Quarter: 2012Q2

REPORT INFORMATION
  Report Type: 
  Country: None (occurrence: None)
  Receive Date: 20120606
  Receipt Date: 20120111
  Transmission Date: 20120825
  Serious: No
  Sender: FDA-Public Use
  Company Number: JP-ASTELLAS-2012JP000330

PATIENT
  Age: 34 Year
  Sex: Female

DRUGS (4)
  1. LOSARTAN POTASSIUM [Concomitant]
     Dosage: UNK
     Route: 065
  2. PREDNISOLONE [Concomitant]
     Dosage: UNK
     Route: 065
  3. PROGRAF [Suspect]
     Dosage: 1 MG, UNKNOWN/D
     Route: 048
  4. IMURAN [Concomitant]
     Dosage: UNK
     Route: 065

REACTIONS (1)
  - MATERNAL EXPOSURE DURING PREGNANCY [None]
